FAERS Safety Report 10861138 (Version 1)
Quarter: 2015Q1

REPORT INFORMATION
  Report Type: Spontaneous
  Country: US (occurrence: None)
  Receive Date: 20150218
  Receipt Date: 20150218
  Transmission Date: 20150721
  Serious: Yes (Hospitalization)
  Sender: FDA-Public Use
  Company Number: None

PATIENT
  Age: 60 Year
  Sex: Female
  Weight: 73.6 kg

DRUGS (28)
  1. ALBUMIN [Concomitant]
     Active Substance: ALBUMIN (HUMAN)
  2. FAMOTIDINE. [Concomitant]
     Active Substance: FAMOTIDINE
  3. GLYCOPYRROLATE. [Concomitant]
     Active Substance: GLYCOPYRROLATE
  4. EPHEDRINE [Concomitant]
     Active Substance: EPHEDRINE
  5. FENTANYL. [Concomitant]
     Active Substance: FENTANYL
  6. ROCURONIUM [Concomitant]
     Active Substance: ROCURONIUM BROMIDE
  7. LORATADINE. [Concomitant]
     Active Substance: LORATADINE
  8. ONDANSETRON [Concomitant]
     Active Substance: ONDANSETRON
  9. SCOPOLAMINE TRANSDERMAL PATCH [Concomitant]
     Active Substance: SCOPOLAMINE
  10. HYDROMORPHONE [Concomitant]
     Active Substance: HYDROMORPHONE
  11. LORAZEPAM. [Concomitant]
     Active Substance: LORAZEPAM
  12. NEOSTIGMINE [Concomitant]
     Active Substance: NEOSTIGMINE
  13. PHENYLEPHRINE [Concomitant]
     Active Substance: PHENYLEPHRINE\PHENYLEPHRINE HYDROCHLORIDE
  14. CLINDAMYCIN [Suspect]
     Active Substance: CLINDAMYCIN\CLINDAMYCIN PHOSPHATE
     Indication: TOOTH ABSCESS
     Route: 048
     Dates: start: 20141021, end: 20141023
  15. AMOXICILLIN-CLAVULANATE [Concomitant]
     Active Substance: AMOXICILLIN\CLAVULANIC ACID
  16. DEXAMETHASONE. [Concomitant]
     Active Substance: DEXAMETHASONE
  17. DIPHENHYDRAMINE [Concomitant]
     Active Substance: DIPHENHYDRAMINE
  18. METOCLOPRAMINDE [Concomitant]
  19. PROPOFOL. [Concomitant]
     Active Substance: PROPOFOL
  20. ROPIVACAINE BRACHIAL PLEXUS INJECTION [Concomitant]
  21. SENNA [Concomitant]
     Active Substance: SENNA LEAF\SENNOSIDES\SENNOSIDES A AND B
  22. CEFAZOLIN [Concomitant]
     Active Substance: CEFAZOLIN
  23. ENOXAPARIN [Concomitant]
     Active Substance: ENOXAPARIN
  24. HYDROCORTISONE. [Concomitant]
     Active Substance: HYDROCORTISONE
  25. THROMBIN [Concomitant]
     Active Substance: THROMBIN
  26. VANCOMYCIN [Concomitant]
     Active Substance: VANCOMYCIN
  27. MIDAZOLAM [Concomitant]
     Active Substance: MIDAZOLAM\MIDAZOLAM HYDROCHLORIDE
  28. OXYCODONE/APAP [Concomitant]
     Active Substance: ACETAMINOPHEN\OXYCODONE HYDROCHLORIDE

REACTIONS (4)
  - Pyrexia [None]
  - Rash [None]
  - Tachycardia [None]
  - Hypotension [None]

NARRATIVE: CASE EVENT DATE: 20141021
